FAERS Safety Report 6328546-X (Version None)
Quarter: 2009Q3

REPORT INFORMATION
  Report Type: 
  Country: None (occurrence: None)
  Receive Date: 20090826
  Receipt Date: 20070625
  Transmission Date: 20100115
  Serious: Yes (Hospitalization, Other)
  Sender: FDA-Public Use
  Company Number: US-ASTRAZENECA-2006UW25455

PATIENT
  Age: 18725 Day
  Sex: Female
  Weight: 117.5 kg

DRUGS (10)
  1. SEROQUEL [Suspect]
     Indication: DEPRESSION
     Dosage: 400 MG BEDTIME, 200 MG DISPENSED
     Route: 048
     Dates: start: 19991126
  2. SEROQUEL [Suspect]
     Route: 048
     Dates: start: 20010101
  3. HALDOL [Concomitant]
     Dates: start: 19920710
  4. RISPERDAL [Concomitant]
     Dates: start: 19950425
  5. STELAZINE [Concomitant]
  6. THORAZINE [Concomitant]
  7. SYMBYAX [Concomitant]
  8. ZYPREXA [Concomitant]
  9. WELLBUTRIN SR [Concomitant]
     Dosage: 150 MG DISPENSED, 150 MG 1 MG BID 400 MG A DAY, 400 MG A DAY IN DIVIDED DOSE
     Route: 048
     Dates: start: 19990323
  10. ZOLOFT [Concomitant]
     Dates: start: 19921222

REACTIONS (8)
  - DIABETES MELLITUS [None]
  - DIABETES MELLITUS INADEQUATE CONTROL [None]
  - DIABETIC COMA [None]
  - DIABETIC NEUROPATHY [None]
  - DIABETIC RETINOPATHY [None]
  - HYPERGLYCAEMIA [None]
  - TYPE 1 DIABETES MELLITUS [None]
  - TYPE 2 DIABETES MELLITUS [None]
